FAERS Safety Report 6447426-2 (Version None)
Quarter: 2009Q4

REPORT INFORMATION
  Report Type: 
  Country: None (occurrence: None)
  Receive Date: 20091119
  Receipt Date: 20091105
  Transmission Date: 20100525
  Serious: Yes (Hospitalization)
  Sender: FDA-Public Use
  Company Number: GB-PFIZER INC-2008060063

PATIENT
  Age: 84 Year
  Sex: Male
  Weight: 75 kg

DRUGS (8)
  1. PREDNISOLONE [Suspect]
     Indication: PROSTATE CANCER METASTATIC
     Dosage: 5 MG, 2X/DAY
     Route: 048
     Dates: start: 20080507
  2. CP-751,871 [Suspect]
     Indication: PROSTATE CANCER METASTATIC
     Dosage: 20 MG/KG, THREE WEEKLY
     Route: 042
     Dates: start: 20080507, end: 20080709
  3. *DOCETAXEL [Suspect]
     Indication: PROSTATE CANCER METASTATIC
     Dosage: 75 MG/M2 (157.5 MG), THREE WEEKLY
     Route: 042
     Dates: start: 20080507, end: 20080709
  4. LANSOPRAZOLE [Concomitant]
     Route: 048
  5. PARACETAMOL [Concomitant]
     Route: 048
  6. SIMVASTATIN [Concomitant]
     Route: 048
  7. LOPERAMIDE [Concomitant]
     Route: 048
     Dates: start: 20080507
  8. NEUPOGEN [Concomitant]
     Route: 058
     Dates: start: 20080516, end: 20080517

REACTIONS (1)
  - NEUTROPENIC SEPSIS [None]
